FAERS Safety Report 22144774 (Version 1)
Quarter: 2023Q1

REPORT INFORMATION
  Report Type: Spontaneous
  Country: ES (occurrence: ES)
  Receive Date: 20230328
  Receipt Date: 20230328
  Transmission Date: 20230418
  Serious: Yes (Other)
  Sender: FDA-Public Use
  Company Number: None

PATIENT

DRUGS (1)
  1. ISTURISA [Suspect]
     Active Substance: OSILODROSTAT PHOSPHATE
     Indication: Cushing^s syndrome
     Dosage: 3 MILLIGRAM (3 TABLETS), Q12H
     Route: 048
     Dates: start: 20220704, end: 20221010

REACTIONS (6)
  - Abnormal weight gain [Recovering/Resolving]
  - Hypertension [Recovered/Resolved]
  - Oedema peripheral [Recovering/Resolving]
  - Hirsutism [Recovering/Resolving]
  - Long QT syndrome [Recovering/Resolving]
  - Off label use [Recovered/Resolved]

NARRATIVE: CASE EVENT DATE: 20220704
